FAERS Safety Report 5775962-0 (Version None)
Quarter: 2008Q2

REPORT INFORMATION
  Report Type: 
  Country: None (occurrence: None)
  Receive Date: 20080613
  Receipt Date: 20080123
  Transmission Date: 20081010
  Serious: Yes (Hospitalization)
  Sender: FDA-Public Use
  Company Number: 20084586

PATIENT
  Sex: Female

DRUGS (1)
  1. LIORESAL [Suspect]
     Indication: MUSCLE SPASTICITY
     Dosage: 551.4 MCG, DAILY, INTRATHECAL
     Route: 037

REACTIONS (22)
  - ASPIRATION TRACHEAL ABNORMAL [None]
  - BACTERIAL INFECTION [None]
  - BLOOD PRESSURE INCREASED [None]
  - CULTURE URINE POSITIVE [None]
  - DECUBITUS ULCER [None]
  - DEHYDRATION [None]
  - DEVICE MALFUNCTION [None]
  - DRUG WITHDRAWAL SYNDROME [None]
  - EPILEPSY [None]
  - HEART RATE INCREASED [None]
  - HYPOTONIA [None]
  - INFLUENZA [None]
  - LISTLESS [None]
  - MUSCLE TWITCHING [None]
  - OVERDOSE [None]
  - PAIN [None]
  - PNEUMONIA ASPIRATION [None]
  - SEDATION [None]
  - SOMNOLENCE [None]
  - STREPTOCOCCAL INFECTION [None]
  - UNDERDOSE [None]
  - URINARY TRACT INFECTION [None]
